FAERS Safety Report 19314101 (Version 1)
Quarter: 2021Q2

REPORT INFORMATION
  Report Type: Spontaneous
  Country: US (occurrence: US)
  Receive Date: 20210527
  Receipt Date: 20210527
  Transmission Date: 20210717
  Serious: Yes (Life-Threatening)
  Sender: FDA-Public Use
  Company Number: None

PATIENT

DRUGS (3)
  1. ABILIFY [Suspect]
     Active Substance: ARIPIPRAZOLE
  2. DEPAKOTE [Suspect]
     Active Substance: DIVALPROEX SODIUM
  3. RISPERIDONE. [Suspect]
     Active Substance: RISPERIDONE

REACTIONS (5)
  - Vomiting [None]
  - Alopecia [None]
  - Toxicity to various agents [None]
  - Feeling abnormal [None]
  - Diarrhoea [None]
